FAERS Safety Report 10687310 (Version 2)
Quarter: 2015Q1

REPORT INFORMATION
  Report Type: Spontaneous
  Country: US (occurrence: US)
  Receive Date: 20150102
  Receipt Date: 20150122
  Transmission Date: 20150720
  Serious: No
  Sender: FDA-Public Use
  Company Number: US-BAYER-2014-190530

PATIENT
  Sex: Female

DRUGS (6)
  1. CLIMARA [Suspect]
     Active Substance: ESTRADIOL
     Indication: HAIR GROWTH ABNORMAL
  2. CLIMARA [Suspect]
     Active Substance: ESTRADIOL
     Indication: HOT FLUSH
  3. CLIMARA [Suspect]
     Active Substance: ESTRADIOL
     Indication: BONE DISORDER
     Dosage: 1 DF, BIW
     Route: 062
     Dates: end: 2011
  4. CLIMARA PRO [Suspect]
     Active Substance: ESTRADIOL\LEVONORGESTREL
     Indication: HOT FLUSH
  5. CLIMARA PRO [Suspect]
     Active Substance: ESTRADIOL\LEVONORGESTREL
     Indication: HAIR GROWTH ABNORMAL
  6. CLIMARA PRO [Suspect]
     Active Substance: ESTRADIOL\LEVONORGESTREL
     Indication: BONE DISORDER
     Dosage: UNK
     Route: 062
     Dates: start: 2011

REACTIONS (3)
  - Hyperhidrosis [None]
  - Product container issue [None]
  - Inappropriate schedule of drug administration [None]
